FAERS Safety Report 11895893 (Version 2)
Quarter: 2016Q1

REPORT INFORMATION
  Report Type: Spontaneous
  Country: US (occurrence: US)
  Receive Date: 20160107
  Receipt Date: 20160107
  Transmission Date: 20160526
  Serious: No
  Sender: FDA-Public Use
  Company Number: US-APOTEX-2015AP010095

PATIENT

DRUGS (1)
  1. BUTORPHANOL TARTRATE. [Suspect]
     Active Substance: BUTORPHANOL TARTRATE
     Indication: MIGRAINE
     Route: 065

REACTIONS (1)
  - Drug ineffective [Unknown]
